FAERS Safety Report 5490053-4 (Version None)
Quarter: 2007Q4

REPORT INFORMATION
  Report Type: 
  Country: None (occurrence: None)
  Receive Date: 20071018
  Receipt Date: 20071008
  Transmission Date: 20080405
  Serious: Yes (Other)
  Sender: FDA-Public Use
  Company Number: US-ELI_LILLY_AND_COMPANY-US200708004953

PATIENT
  Age: 64 Year
  Sex: Male
  Weight: 74.83 kg

DRUGS (2)
  1. CYMBALTA [Suspect]
     Indication: PAIN
     Dosage: UNK MG, UNK
     Dates: start: 20060701
  2. CYMBALTA [Suspect]
     Dosage: 120 MG, UNK

REACTIONS (3)
  - BENIGN COLONIC NEOPLASM [None]
  - INTENTIONAL OVERDOSE [None]
  - RECTAL HAEMORRHAGE [None]
